FAERS Safety Report 7551853-X (Version None)
Quarter: 2011Q2

REPORT INFORMATION
  Report Type: 
  Country: None (occurrence: None)
  Receive Date: 20110616
  Receipt Date: 20110607
  Transmission Date: 20111010
  Serious: Yes (Other)
  Sender: FDA-Public Use
  Company Number: US-ASTRAZENECA-2011SE35419

PATIENT
  Age: 40 Year
  Sex: Female

DRUGS (1)
  1. NEXIUM [Suspect]
     Route: 048

REACTIONS (4)
  - LYMPHOMA [None]
  - DRUG DOSE OMISSION [None]
  - INTESTINAL FUNCTIONAL DISORDER [None]
  - ABDOMINAL DISCOMFORT [None]
